FAERS Safety Report 6666586-1 (Version None)
Quarter: 2010Q2

REPORT INFORMATION
  Report Type: 
  Country: None (occurrence: None)
  Receive Date: 20100404
  Receipt Date: 20100311
  Transmission Date: 20101027
  Serious: No
  Sender: FDA-Public Use
  Company Number: US-ALLERGAN-1003258US

PATIENT
  Sex: Female

DRUGS (2)
  1. ZYMAR [Suspect]
     Indication: GLAUCOMA SURGERY
     Dosage: 1 GTT, QID
     Dates: start: 20100308, end: 20100309
  2. ACUVAIL [Suspect]
     Indication: GLAUCOMA SURGERY
     Dosage: 1 GTT, BID
     Dates: start: 20100308, end: 20100309

REACTIONS (1)
  - PRURITUS GENERALISED [None]
